FAERS Safety Report 22062829 (Version 1)
Quarter: 2023Q1

REPORT INFORMATION
  Report Type: Other
  Country: CA (occurrence: CA)
  Receive Date: 20230306
  Receipt Date: 20230306
  Transmission Date: 20230418
  Serious: Yes (Death, Other)
  Sender: FDA-Public Use
  Company Number: CA-APOTEX-2023AP004321

PATIENT
  Age: 93 Year
  Sex: Female

DRUGS (2)
  1. SOTALOL [Interacting]
     Active Substance: SOTALOL
     Indication: Cardiac disorder
     Dosage: UNK
     Route: 065
  2. XELJANZ [Interacting]
     Active Substance: TOFACITINIB CITRATE
     Indication: Rheumatoid arthritis
     Dosage: 5 MILLIGRAM, BID
     Route: 048

REACTIONS (2)
  - Death [Fatal]
  - Drug interaction [Unknown]
